FAERS Safety Report 8258977-2 (Version None)
Quarter: 2012Q2

REPORT INFORMATION
  Report Type: 
  Country: None (occurrence: None)
  Receive Date: 20120404
  Receipt Date: 20120327
  Transmission Date: 20120825
  Serious: Yes (Other)
  Sender: FDA-Public Use
  Company Number: US-JNJFOC-20120313887

PATIENT
  Sex: Male

DRUGS (16)
  1. FENTANYL-100 [Suspect]
     Route: 062
     Dates: start: 20110101, end: 20110101
  2. FENTANYL-100 [Suspect]
     Route: 062
     Dates: start: 20110101, end: 20110101
  3. DURAGESIC-100 [Suspect]
     Indication: PAIN
     Route: 062
     Dates: start: 20110101
  4. FENTANYL-100 [Suspect]
     Indication: PAIN
     Route: 062
     Dates: start: 20110101, end: 20110101
  5. FENTANYL-100 [Suspect]
     Route: 062
     Dates: start: 20110101, end: 20110101
  6. FENTANYL-100 [Suspect]
     Route: 062
     Dates: start: 20110101, end: 20110101
  7. DURAGESIC-100 [Suspect]
     Indication: BACK PAIN
     Route: 062
     Dates: start: 20110101
  8. FENTANYL-100 [Suspect]
     Route: 062
     Dates: start: 20110101, end: 20110101
  9. FENTANYL-100 [Suspect]
     Route: 062
     Dates: start: 20110101, end: 20110101
  10. FENTANYL-100 [Suspect]
     Route: 062
     Dates: start: 20110101, end: 20110101
  11. DURAGESIC-100 [Suspect]
     Indication: SPINAL OSTEOARTHRITIS
     Route: 062
     Dates: start: 20110101
  12. FENTANYL-100 [Suspect]
     Indication: SPINAL OSTEOARTHRITIS
     Route: 062
     Dates: start: 20110101, end: 20110101
  13. FENTANYL-100 [Suspect]
     Indication: BACK PAIN
     Route: 062
     Dates: start: 20110101, end: 20110101
  14. FENTANYL-100 [Suspect]
     Route: 062
     Dates: start: 20110101, end: 20110101
  15. FENTANYL-100 [Suspect]
     Route: 062
     Dates: start: 20110101, end: 20110101
  16. LISINOPRIL [Concomitant]
     Indication: BLOOD PRESSURE ABNORMAL
     Route: 065
     Dates: start: 20110101

REACTIONS (4)
  - BLOOD TESTOSTERONE DECREASED [None]
  - HYPERHIDROSIS [None]
  - BREAKTHROUGH PAIN [None]
  - PRODUCT QUALITY ISSUE [None]
